FAERS Safety Report 9387901 (Version 1)
Quarter: 2013Q3

REPORT INFORMATION
  Report Type: Spontaneous
  Country: US (occurrence: None)
  Receive Date: 20130701
  Receipt Date: 20130701
  Transmission Date: 20140515
  Serious: Yes (Hospitalization)
  Sender: FDA-Public Use
  Company Number: 1773991

PATIENT
  Age: 21 Year
  Sex: Female

DRUGS (4)
  1. HYDROCORTISONE [Suspect]
     Indication: ADRENAL INSUFFICIENCY
  2. DESMOPRESSIN [Concomitant]
  3. ANTIEPILEPTICS [Concomitant]
  4. NORMAL SALINE [Concomitant]

REACTIONS (1)
  - Polyuria [None]
